FAERS Safety Report 8809542 (Version 40)
Quarter: 2015Q4

REPORT INFORMATION
  Report Type: Report from Study
  Country: CA (occurrence: CA)
  Receive Date: 20120926
  Receipt Date: 20151004
  Transmission Date: 20160305
  Serious: Yes (Hospitalization, Other)
  Sender: FDA-Public Use
  Company Number: CA-ROCHE-1078526

PATIENT
  Age: 40 Year
  Sex: Female
  Weight: 120.2 kg

DRUGS (10)
  1. ACTEMRA [Suspect]
     Active Substance: TOCILIZUMAB
     Route: 042
     Dates: start: 20140820
  2. LIPITOR [Concomitant]
     Active Substance: ATORVASTATIN CALCIUM
  3. ACTEMRA [Suspect]
     Active Substance: TOCILIZUMAB
     Route: 042
     Dates: start: 20120112
  4. FOLIC ACID. [Concomitant]
     Active Substance: FOLIC ACID
  5. ACTEMRA [Suspect]
     Active Substance: TOCILIZUMAB
     Indication: RHEUMATOID ARTHRITIS
     Route: 042
     Dates: start: 20111215
  6. DIOVAN [Concomitant]
     Active Substance: VALSARTAN
  7. VALSARTAN. [Concomitant]
     Active Substance: VALSARTAN
  8. METHOTREXATE [Concomitant]
     Active Substance: METHOTREXATE
     Indication: RHEUMATOID ARTHRITIS
     Route: 058
  9. HYDROCHLOROTHIAZIDE. [Concomitant]
     Active Substance: HYDROCHLOROTHIAZIDE
  10. VITAMIN B6 [Concomitant]
     Active Substance: PYRIDOXINE HYDROCHLORIDE

REACTIONS (30)
  - Fatigue [Unknown]
  - Diverticulitis [Not Recovered/Not Resolved]
  - Face injury [Unknown]
  - Cough [Unknown]
  - Nasal congestion [Not Recovered/Not Resolved]
  - Bone abscess [Unknown]
  - Dehydration [Recovered/Resolved]
  - Nephrolithiasis [Unknown]
  - Rhinorrhoea [Not Recovered/Not Resolved]
  - Upper respiratory tract infection [Recovered/Resolved]
  - Hypotension [Unknown]
  - Back pain [Unknown]
  - Cystitis [Recovered/Resolved]
  - Oxygen saturation decreased [Unknown]
  - Oxygen saturation decreased [Unknown]
  - Weight decreased [Unknown]
  - Blood pressure increased [Unknown]
  - Hepatic enzyme abnormal [Unknown]
  - Nasopharyngitis [Recovered/Resolved]
  - Injection site extravasation [Unknown]
  - Rheumatoid arthritis [Not Recovered/Not Resolved]
  - Pain [Unknown]
  - Frustration [Unknown]
  - Infusion related reaction [Unknown]
  - Paronychia [Recovered/Resolved]
  - Tooth fracture [Unknown]
  - Blood pressure diastolic decreased [Unknown]
  - Heart rate increased [Not Recovered/Not Resolved]
  - Urinary tract infection [Unknown]
  - Kidney infection [Unknown]

NARRATIVE: CASE EVENT DATE: 20120920
